FAERS Safety Report 10384563 (Version 2)
Quarter: 2014Q3

REPORT INFORMATION
  Report Type: Spontaneous
  Country: GB (occurrence: GB)
  Receive Date: 20140814
  Receipt Date: 20140820
  Transmission Date: 20150326
  Serious: Yes (Other)
  Sender: FDA-Public Use
  Company Number: GB-TEVA-500101ISR

PATIENT
  Sex: Female

DRUGS (9)
  1. FLUDARABINE [Suspect]
     Active Substance: FLUDARABINE PHOSPHATE
     Indication: IMMUNOSUPPRESSION
     Route: 065
     Dates: start: 1992, end: 2006
  2. CYCLOPHOSPHAMIDE. [Suspect]
     Active Substance: CYCLOPHOSPHAMIDE
     Indication: IMMUNOSUPPRESSION
     Dosage: 6 CYCLES
     Route: 065
     Dates: start: 2006
  3. MITOXANTRONE [Suspect]
     Active Substance: MITOXANTRONE HYDROCHLORIDE
     Indication: IMMUNOSUPPRESSION
     Route: 065
     Dates: start: 1992, end: 2006
  4. CHLORAMBUCIL [Suspect]
     Active Substance: CHLORAMBUCIL
     Indication: IMMUNOSUPPRESSION
     Route: 065
     Dates: start: 1992, end: 2006
  5. VINCRISTINE [Suspect]
     Active Substance: VINCRISTINE
     Indication: IMMUNOSUPPRESSION
     Dosage: 6 CYCLES
     Route: 065
     Dates: start: 2006
  6. RITUXIMAB [Suspect]
     Active Substance: RITUXIMAB
     Indication: IMMUNOSUPPRESSION
     Dosage: 6 CYCLES
     Route: 065
     Dates: start: 2002
  7. DEXAMETHASONE. [Suspect]
     Active Substance: DEXAMETHASONE
     Indication: IMMUNOSUPPRESSION
     Route: 065
     Dates: start: 1992, end: 2006
  8. DOXORUBICIN [Suspect]
     Active Substance: DOXORUBICIN
     Indication: IMMUNOSUPPRESSION
     Dosage: 6 CYCLES
     Route: 065
     Dates: start: 2002
  9. PREDNISOLONE. [Suspect]
     Active Substance: PREDNISOLONE
     Indication: IMMUNOSUPPRESSION
     Dosage: 6 CYCLES
     Route: 065
     Dates: start: 2006

REACTIONS (2)
  - Hypogammaglobulinaemia [Recovering/Resolving]
  - Vulvovaginal candidiasis [Unknown]
